FAERS Safety Report 6909383-1 (Version None)
Quarter: 2010Q3

REPORT INFORMATION
  Report Type: 
  Country: None (occurrence: None)
  Receive Date: 20100805
  Receipt Date: 20100727
  Transmission Date: 20110219
  Serious: Yes (Hospitalization)
  Sender: FDA-Public Use
  Company Number: DE-ABBOTT-10P-062-0660507-00

PATIENT
  Age: 74 Year
  Sex: Male

DRUGS (4)
  1. HUMIRA [Suspect]
     Indication: RHEUMATOID ARTHRITIS
     Route: 058
     Dates: start: 20050101, end: 20070501
  2. METHOTREXATE SODIUM [Concomitant]
     Indication: RHEUMATOID ARTHRITIS
     Dates: start: 20040201
  3. METHOTREXATE SODIUM [Concomitant]
     Dates: start: 20050101, end: 20080101
  4. METHOTREXATE SODIUM [Concomitant]
     Dates: start: 20090101

REACTIONS (5)
  - ALOPECIA TOTALIS [None]
  - FISTULA [None]
  - INFECTION [None]
  - MYELITIS [None]
  - OSTEONECROSIS [None]
